FAERS Safety Report 14998921 (Version 1)
Quarter: 2018Q2

REPORT INFORMATION
  Report Type: Other
  Country: SE (occurrence: SE)
  Receive Date: 20180612
  Receipt Date: 20180612
  Transmission Date: 20180711
  Serious: Yes (Disabling)
  Sender: FDA-Public Use
  Company Number: SE-DENTSPLY-2018SCDP000194

PATIENT
  Age: 62 Year
  Sex: Female

DRUGS (2)
  1. XYLOCAINE WITH ADRENALINE (EPINEPHRINE) [Suspect]
     Active Substance: EPINEPHRINE BITARTRATE\LIDOCAINE HYDROCHLORIDE
     Indication: DENTAL PROSTHESIS PLACEMENT
     Dosage: INJECTION
     Dates: start: 20131128, end: 20131128
  2. XYLOCAINE WITH ADRENALINE (EPINEPHRINE) [Suspect]
     Active Substance: EPINEPHRINE BITARTRATE\LIDOCAINE HYDROCHLORIDE
     Indication: TOOTH EXTRACTION
     Dosage: INJECTION
     Dates: start: 20131126, end: 20131126

REACTIONS (5)
  - Thought blocking [Recovered/Resolved]
  - Anal incontinence [Recovered/Resolved]
  - Abdominal pain [Recovered/Resolved]
  - Feeling abnormal [Recovered/Resolved]
  - Lack of spontaneous speech [Recovered/Resolved]

NARRATIVE: CASE EVENT DATE: 20131126
